FAERS Safety Report 4514980-7 (Version None)
Quarter: 2004Q4

REPORT INFORMATION
  Report Type: 
  Country: None (occurrence: None)
  Receive Date: 20041129
  Receipt Date: 20041129
  Transmission Date: 20050328
  Serious: Yes (Death, Life-Threatening, Hospitalization)
  Sender: FDA-Public Use
  Company Number: None

PATIENT
  Age: 75 Year
  Sex: Female
  Weight: 84 kg

DRUGS (10)
  1. KETOROLAC 15 MG IV [Suspect]
     Indication: POST PROCEDURAL PAIN
     Dosage: 15 MG IV Q 6H (5 DAY STOP DATE)
     Route: 042
     Dates: start: 20040927, end: 20041002
  2. TYLOX [Concomitant]
  3. CETAZOLIN [Concomitant]
  4. LABETALOL [Concomitant]
  5. PREVACID [Concomitant]
  6. DEMEROL [Concomitant]
  7. ZOFRAN [Concomitant]
  8. LOPRESSOR [Concomitant]
  9. VALSARAN HCT [Concomitant]
  10. DOPAMINE HCL [Concomitant]

REACTIONS (6)
  - CEREBROVASCULAR ACCIDENT [None]
  - HEADACHE [None]
  - HYPOTENSION [None]
  - INTESTINAL PERFORATION [None]
  - LOOSE STOOLS [None]
  - URINE OUTPUT DECREASED [None]
